FAERS Safety Report 4582014-4 (Version None)
Quarter: 2005Q1

REPORT INFORMATION
  Report Type: 
  Country: None (occurrence: None)
  Receive Date: 20050119
  Receipt Date: 20040706
  Transmission Date: 20050727
  Serious: Yes (Hospitalization)
  Sender: FDA-Public Use
  Company Number: A03200402191

PATIENT
  Age: 69 Year
  Sex: Male
  Weight: 94 kg

DRUGS (13)
  1. PLAVIX [Suspect]
     Dosage: 75 MG QD - ORAL
     Route: 048
     Dates: start: 20031027
  2. ANGIOMAX [Suspect]
     Indication: ANTICOAGULANT THERAPY
     Dosage: 71.5 MG BOLUS FOLLOWED BY 33 ML/H- INTRANVOUS NOS
     Route: 042
     Dates: start: 20031027, end: 20031027
  3. COUMADIN [Suspect]
     Indication: INTRACARDIAC THROMBUS
     Dates: start: 20030201, end: 20031128
  4. LEVOTHYROXINE SODIUM [Concomitant]
  5. POTASSIUM CHLORIDE [Concomitant]
  6. ISOSORBIDE MONONITRATE [Concomitant]
  7. CARVEDILOL [Concomitant]
  8. AMIODARONE HCL [Concomitant]
  9. ALLOPURINOL [Concomitant]
  10. ACETYLSALICYLIC ACID SRT [Concomitant]
  11. PRAVASTATIN SODIUM [Concomitant]
  12. NITROGLYCERIN [Concomitant]
  13. CYPHER STENT [Concomitant]

REACTIONS (2)
  - ANAEMIA [None]
  - CHEST PAIN [None]
